FAERS Safety Report 8525470-9 (Version None)
Quarter: 2012Q3

REPORT INFORMATION
  Report Type: 
  Country: None (occurrence: None)
  Receive Date: 20120710
  Receipt Date: 20120628
  Transmission Date: 20120928
  Serious: Yes (Other)
  Sender: FDA-Public Use
  Company Number: DSA_58204_2012

PATIENT
  Age: 37 Year
  Sex: Female

DRUGS (6)
  1. WHOLE BLOOD [Concomitant]
  2. METRONIDAZOLE [Suspect]
     Indication: CHOLECYSTITIS CHRONIC
     Dosage: (DF INTRAVENOUS (NOT OTHERWISE SPECIFIED)
     Route: 042
  3. UNASYN /00903602/ [Concomitant]
  4. CEFOPERAZONE SODIUM [Concomitant]
  5. BLOOD CELLS, PACKED HUMAN [Concomitant]
  6. ANTIBIOTICS [Concomitant]

REACTIONS (2)
  - CAESAREAN SECTION [None]
  - MATERNAL EXPOSURE DURING PREGNANCY [None]
